FAERS Safety Report 17060378 (Version 2)
Quarter: 2019Q4

REPORT INFORMATION
  Report Type: Spontaneous
  Country: VN (occurrence: VN)
  Receive Date: 20191121
  Receipt Date: 20191209
  Transmission Date: 20200122
  Serious: Yes (Hospitalization, Other)
  Sender: FDA-Public Use
  Company Number: NVSC2019VN039654

PATIENT
  Age: 43 Year
  Sex: Male

DRUGS (3)
  1. TEGRETOL [Suspect]
     Active Substance: CARBAMAZEPINE
     Dosage: 2.5 DF, QD  (1 TAB PER MORNING, 1 TAB PER NOON, ? TABLET/EVENING)
     Route: 048
     Dates: start: 20190609
  2. TEGRETOL [Suspect]
     Active Substance: CARBAMAZEPINE
     Indication: TRIGEMINAL NEURALGIA
     Dosage: 0.5 DF, BID
     Route: 048
     Dates: start: 20190601, end: 20190604
  3. TEGRETOL [Suspect]
     Active Substance: CARBAMAZEPINE
     Dosage: 0.5 DF, TID
     Route: 048
     Dates: start: 20190605, end: 20190608

REACTIONS (8)
  - Fatigue [Unknown]
  - Rash [Unknown]
  - Pyrexia [Unknown]
  - Drug hypersensitivity [Unknown]
  - Tremor [Unknown]
  - Somnolence [Unknown]
  - Fungal infection [Unknown]
  - Pneumonia [Unknown]

NARRATIVE: CASE EVENT DATE: 20190609
